FAERS Safety Report 14689740 (Version 1)
Quarter: 2018Q1

REPORT INFORMATION
  Report Type: Spontaneous
  Country: CO (occurrence: CO)
  Receive Date: 20180328
  Receipt Date: 20180328
  Transmission Date: 20180509
  Serious: Yes (Other)
  Sender: FDA-Public Use
  Company Number: CO-JNJFOC-20180306536

PATIENT
  Sex: Male

DRUGS (1)
  1. XARELTO [Suspect]
     Active Substance: RIVAROXABAN
     Indication: ATRIAL FIBRILLATION
     Route: 048
     Dates: start: 2016, end: 20180210

REACTIONS (6)
  - Occult blood positive [Recovered/Resolved]
  - Pulmonary haemorrhage [Recovered/Resolved]
  - Haemoptysis [Recovered/Resolved]
  - Gastrointestinal haemorrhage [Unknown]
  - Melaena [Recovered/Resolved]
  - Gastritis erosive [Recovered/Resolved]

NARRATIVE: CASE EVENT DATE: 2016
